FAERS Safety Report 7735136-0 (Version None)
Quarter: 2011Q3

REPORT INFORMATION
  Report Type: 
  Country: None (occurrence: None)
  Receive Date: 20110907
  Receipt Date: 20110830
  Transmission Date: 20111222
  Serious: Yes (Other)
  Sender: FDA-Public Use
  Company Number: JP-ROCHE-703412

PATIENT
  Sex: Female
  Weight: 37 kg

DRUGS (14)
  1. XELODA [Suspect]
     Dosage: NOTE: IT IS ONE ADMINISTERING WEEKLY HOLIDAY MEDICINE FOR TWO WEEKS.
     Route: 048
     Dates: start: 20100219, end: 20100423
  2. AVASTIN [Suspect]
     Indication: COLON CANCER
     Dosage: .
     Route: 041
     Dates: start: 20091204, end: 20100409
  3. RABEPRAZOLE SODIUM [Concomitant]
     Route: 048
     Dates: start: 20091030
  4. DEXAMETHASONE SODIUM PHOSPHATE [Concomitant]
     Dosage: FORM:INJECTION
     Route: 041
     Dates: start: 20091112
  5. XELODA [Suspect]
     Indication: COLON CANCER
     Dosage: NOTE: IT IS ONE ADMINISTERING WEEKLY HOLIDAY MEDICINE FOR TWO WEEKS.
     Route: 048
     Dates: start: 20091112, end: 20091209
  6. OXALIPLATIN [Suspect]
     Route: 041
     Dates: start: 20100219, end: 20100219
  7. RAMELTEON [Concomitant]
     Dates: start: 20091112
  8. MAGNESIUM SULFATE [Concomitant]
     Dosage: DOSE FORM: PERORAL AGENT. NOTE: DOSAGE IS UNCERTAIN.
     Route: 048
  9. PURSENNID [Concomitant]
     Route: 048
     Dates: start: 20091109
  10. XELODA [Suspect]
     Dosage: NOTE: IT IS ONE ADMINISTERING WEEKLY HOLIDAY MEDICINE FOR TWO WEEKS.
     Route: 048
     Dates: start: 20100105, end: 20100209
  11. OXALIPLATIN [Suspect]
     Indication: COLON CANCER
     Route: 041
     Dates: start: 20091112, end: 20091204
  12. OXALIPLATIN [Suspect]
     Route: 041
     Dates: start: 20100105, end: 20100126
  13. VITAMEDIN [Concomitant]
     Route: 048
     Dates: start: 20091112, end: 20100423
  14. FOIPAN [Concomitant]
     Route: 048
     Dates: start: 20091208

REACTIONS (6)
  - PALMAR-PLANTAR ERYTHRODYSAESTHESIA SYNDROME [None]
  - DECREASED APPETITE [None]
  - PANCREATIC ENZYMES INCREASED [None]
  - KERATITIS [None]
  - MALAISE [None]
  - NAUSEA [None]
